FAERS Safety Report 22622155 (Version 1)
Quarter: 2023Q2

REPORT INFORMATION
  Report Type: Spontaneous
  Country: CN (occurrence: CN)
  Receive Date: 20230620
  Receipt Date: 20230620
  Transmission Date: 20230722
  Serious: Yes (Death, Other)
  Sender: FDA-Public Use
  Company Number: CN-009507513-2306CHN007165

PATIENT
  Sex: Male

DRUGS (2)
  1. PEMBROLIZUMAB [Suspect]
     Active Substance: PEMBROLIZUMAB
     Indication: Non-small cell lung cancer stage III
     Dosage: UNK
  2. PACLITAXEL [Concomitant]
     Active Substance: PACLITAXEL
     Indication: Non-small cell lung cancer stage III
     Dosage: 6 CYCLES

REACTIONS (2)
  - Immune-mediated lung disease [Fatal]
  - Off label use [Unknown]
